FAERS Safety Report 13543575 (Version 1)
Quarter: 2017Q2

REPORT INFORMATION
  Report Type: Report from Study
  Country: CO (occurrence: CO)
  Receive Date: 20170515
  Receipt Date: 20170515
  Transmission Date: 20170830
  Serious: Yes (Other)
  Sender: FDA-Public Use
  Company Number: CO-ROCHE-1934663

PATIENT
  Age: 86 Year
  Sex: Female
  Weight: 63 kg

DRUGS (1)
  1. LUCENTIS [Suspect]
     Active Substance: RANIBIZUMAB
     Indication: OPHTHALMIC VEIN THROMBOSIS
     Route: 065
     Dates: start: 20140612

REACTIONS (3)
  - Product use in unapproved indication [Unknown]
  - Blindness [Unknown]
  - Product use issue [Unknown]

NARRATIVE: CASE EVENT DATE: 20170510
